FAERS Safety Report 4281070-0 (Version None)
Quarter: 2004Q1

REPORT INFORMATION
  Report Type: 
  Country: None (occurrence: None)
  Receive Date: 20040123
  Receipt Date: 20021213
  Transmission Date: 20041129
  Serious: Yes (Other)
  Sender: FDA-Public Use
  Company Number: HQ5800916DEC2002

PATIENT
  Sex: Female

DRUGS (10)
  1. CORDARONE [Suspect]
     Dosage: 200 MG 2 X PER 1 DAY, ORAL
     Route: 048
  2. ISOSORBIDE (ISOSORBIDE) [Concomitant]
  3. QUINAPRIL HCL [Concomitant]
  4. CARVEDILOL [Concomitant]
  5. POTASSIUM (POTASSIUM) [Concomitant]
  6. WARFARIN SODIUM [Concomitant]
  7. OMEPRAZOLE [Concomitant]
  8. COENZYME Q10 [Concomitant]
  9. FUROSEMIDE [Concomitant]
  10. ROFECOXIB [Concomitant]

REACTIONS (2)
  - BLOOD CREATINE PHOSPHOKINASE INCREASED [None]
  - MYOPATHY [None]
